FAERS Safety Report 6738399-3 (Version None)
Quarter: 2010Q2

REPORT INFORMATION
  Report Type: 
  Country: None (occurrence: None)
  Receive Date: 20100520
  Receipt Date: 20100507
  Transmission Date: 20101027
  Serious: Yes (Other)
  Sender: FDA-Public Use
  Company Number: 004383

PATIENT
  Sex: Female
  Weight: 75 kg

DRUGS (6)
  1. XYZAL [Suspect]
     Indication: RHINITIS ALLERGIC
     Dosage: 1 TABLET DAILY IRREGULAR INTAKE ORAL, 1 TABLET DAILY ORAL
     Route: 048
     Dates: start: 20091001, end: 20091001
  2. XYZAL [Suspect]
     Indication: RHINITIS ALLERGIC
     Dosage: 1 TABLET DAILY IRREGULAR INTAKE ORAL, 1 TABLET DAILY ORAL
     Route: 048
     Dates: start: 20080101
  3. SALBUTAMOL [Concomitant]
  4. ANTIBIOTICS [Concomitant]
  5. SYNTOCINON [Concomitant]
  6. CLAMOXYL /00249601/ [Concomitant]

REACTIONS (5)
  - ANAEMIA OF PREGNANCY [None]
  - CAESAREAN SECTION [None]
  - DRUG EXPOSURE DURING PREGNANCY [None]
  - PREGNANCY [None]
  - PREMATURE RUPTURE OF MEMBRANES [None]
